FAERS Safety Report 6736578 (Version 4)
Quarter: 2015Q1

REPORT INFORMATION
  Report Type: Spontaneous
  Country: JP (occurrence: None)
  Receive Date: 20080812
  Receipt Date: 20150330
  Transmission Date: 20150721
  Serious: Yes (Hospitalization, Other)
  Sender: FDA-Public Use
  Company Number: 2008JP003568

PATIENT
  Age: 44 Year
  Sex: Female
  Weight: 53.3 kg

DRUGS (20)
  1. PREDONINE (PREDNISOLONE) [Concomitant]
  2. PARIET (RABEPRAZOLE SODIUM) [Concomitant]
  3. BIOFERMIN (LACTOMIN) [Concomitant]
  4. SLOW-K (POTASSIUM CHLORIDE) [Concomitant]
  5. TIMOPTOL (TIMOLOL MALEATE) [Concomitant]
  6. DEPAS (ETIZOLAM) [Concomitant]
  7. PREDNISOLONE. [Suspect]
     Active Substance: PREDNISOLONE
     Indication: LUPUS NEPHRITIS
     Dosage: SEE IMAGE
     Route: 048
     Dates: start: 20071210, end: 20080106
  8. LIPITOR [Concomitant]
     Active Substance: ATORVASTATIN CALCIUM
  9. TACROLIMUS. [Suspect]
     Active Substance: TACROLIMUS
     Indication: LUPUS NEPHRITIS
     Dosage: 3 MG/D, ORAL, 1 MG/D, ORAL, 2MG/D, ORAL, 50MG/D, ORAL, ORAL
     Route: 048
     Dates: start: 20071015, end: 20071018
  10. ONEALFA [Concomitant]
     Active Substance: ALFACALCIDOL
  11. FOSAMAC (ALENDRONATE SODIUM) [Concomitant]
  12. DIAMOX (ACETAZOLAMIDE) [Concomitant]
  13. EURODIN (ESTAZOLAM) [Concomitant]
  14. MUCOSTA (RABEPRAZOLE) [Concomitant]
  15. VANCOMYCIN (MECOBALAMIN) [Concomitant]
  16. GASMOTIN (MOSAPRIDE CITRATE) [Concomitant]
     Active Substance: MOSAPRIDE CITRATE
  17. PROMAC (POLAPREZINC) [Concomitant]
     Active Substance: POLAPREZINC
  18. ONEALPHA (ALFACALCIDOL) [Concomitant]
  19. BACTRAMIN (SULFAMETHOXAZOLE-TRIMETHOPRIM) [Concomitant]
  20. PERSANTYIN-L (DIPYRIDAMOLE) [Concomitant]

REACTIONS (5)
  - Oral herpes [None]
  - Osteonecrosis [None]
  - Hypoaesthesia [None]
  - Tremor [None]
  - Ocular hypertension [None]

NARRATIVE: CASE EVENT DATE: 20071018
